FAERS Safety Report 4353003-X (Version None)
Quarter: 2004Q2

REPORT INFORMATION
  Report Type: 
  Country: None (occurrence: None)
  Receive Date: 20040430
  Receipt Date: 20040331
  Transmission Date: 20050107
  Serious: No
  Sender: FDA-Public Use
  Company Number: 205569

PATIENT
  Age: 14 Year
  Sex: Female
  Weight: 55 kg

DRUGS (8)
  1. XOLAIR [Suspect]
     Indication: ASTHMA
     Dosage: 375 MG, Q2W, SUBCUTANEOUS
     Route: 058
     Dates: start: 20040329
  2. ADVAIR (SALMETEROL XINAFOATE, FLUTICASONE PROPIONATE) [Concomitant]
  3. SINGULAIR [Concomitant]
  4. MAXAIR [Concomitant]
  5. FLONASE [Concomitant]
  6. LEXAPRO [Concomitant]
  7. ZYRTEC-D (CETIRIZINE HYDROCHLORIDE, PSEUDOEPHEDRINE HYDROCHLORIDE) [Concomitant]
  8. ALLERGY INJECTIONS (ALLERGENIC EXTRACTS) [Concomitant]

REACTIONS (2)
  - CHILLS [None]
  - PHARYNGOLARYNGEAL PAIN [None]
